FAERS Safety Report 19077378 (Version 1)
Quarter: 2021Q1

REPORT INFORMATION
  Report Type: Spontaneous
  Country: US (occurrence: US)
  Receive Date: 20210330
  Receipt Date: 20210330
  Transmission Date: 20210420
  Serious: Yes (Hospitalization)
  Sender: FDA-Public Use
  Company Number: None

PATIENT
  Age: 56 Year
  Sex: Female

DRUGS (13)
  1. PRAZOSIN HCL [Concomitant]
     Active Substance: PRAZOSIN HYDROCHLORIDE
  2. GILENYA [Suspect]
     Active Substance: FINGOLIMOD HYDROCHLORIDE
     Indication: MULTIPLE SCLEROSIS
     Route: 048
     Dates: start: 20170118
  3. OXYCODONE [Concomitant]
     Active Substance: OXYCODONE
  4. PROPRANOLOL [Concomitant]
     Active Substance: PROPRANOLOL HYDROCHLORIDE
  5. ONDANSETRON [Concomitant]
     Active Substance: ONDANSETRON
  6. SODIUM BICAR [Concomitant]
  7. ENTYVIO [Concomitant]
     Active Substance: VEDOLIZUMAB
  8. METRONIDAZOL [Concomitant]
     Active Substance: METRONIDAZOLE
  9. DICLOFENAC GEL [Concomitant]
     Active Substance: DICLOFENAC
  10. SERTRALINE [Concomitant]
     Active Substance: SERTRALINE HYDROCHLORIDE
  11. VITAMIN D [Concomitant]
     Active Substance: VITAMIN D NOS
  12. ALPRAZOLAM. [Concomitant]
     Active Substance: ALPRAZOLAM
  13. NITAZOXANIDE [Concomitant]
     Active Substance: NITAZOXANIDE

REACTIONS (1)
  - Intestinal infarction [None]

NARRATIVE: CASE EVENT DATE: 202011
